FAERS Safety Report 8177125-0 (Version None)
Quarter: 2012Q1

REPORT INFORMATION
  Report Type: 
  Country: None (occurrence: None)
  Receive Date: 20120301
  Receipt Date: 20110310
  Transmission Date: 20120608
  Serious: Yes (Hospitalization)
  Sender: FDA-Public Use
  Company Number: US-GLAXOSMITHKLINE-B0706216A

PATIENT
  Age: 70 Year
  Sex: Female

DRUGS (7)
  1. LEVOTHYROXINE SODIUM [Concomitant]
  2. CLONIDINE [Concomitant]
  3. CARVEDILOL [Concomitant]
  4. AVANDARYL [Suspect]
     Indication: DIABETES MELLITUS
     Route: 048
     Dates: start: 20031227, end: 20100916
  5. LIPITOR [Concomitant]
  6. RANITIDINE [Concomitant]
  7. AVANDIA [Suspect]
     Indication: DIABETES MELLITUS
     Dosage: 4MG PER DAY
     Route: 048
     Dates: start: 20031227, end: 20100916

REACTIONS (3)
  - CARDIOVASCULAR DISORDER [None]
  - SINUS BRADYCARDIA [None]
  - ATRIOVENTRICULAR BLOCK [None]
